FAERS Safety Report 6558453-9 (Version None)
Quarter: 2010Q1

REPORT INFORMATION
  Report Type: 
  Country: None (occurrence: None)
  Receive Date: 20100126
  Receipt Date: 20100113
  Transmission Date: 20100710
  Serious: Yes (Hospitalization, Disabling, Other)
  Sender: FDA-Public Use
  Company Number: 230516J10USA

PATIENT
  Age: 78 Year
  Sex: Male

DRUGS (6)
  1. REBIF [Suspect]
     Indication: MULTIPLE SCLEROSIS
     Dosage: 44 MCG, 3 IN 1 WEEKS, SUBCUTANEOUS
     Route: 058
     Dates: start: 20021107
  2. COUMADIN [Concomitant]
  3. BACLOFEN [Concomitant]
  4. PRIMIDONE [Concomitant]
  5. PROPANOLOL (PROPRANOLOL /00030001/) [Concomitant]
  6. NEURONTIN [Concomitant]

REACTIONS (9)
  - CARDIAC DISORDER [None]
  - CARDIAC FAILURE CONGESTIVE [None]
  - CONDITION AGGRAVATED [None]
  - DYSPNOEA [None]
  - HYPERTENSION [None]
  - IRON OVERLOAD [None]
  - MULTIPLE SCLEROSIS [None]
  - URINARY INCONTINENCE [None]
  - URINARY TRACT INFECTION [None]
